FAERS Safety Report 11712921 (Version 1)
Quarter: 2015Q4

REPORT INFORMATION
  Report Type: Spontaneous
  Country: US (occurrence: US)
  Receive Date: 20151108
  Receipt Date: 20151108
  Transmission Date: 20160304
  Serious: No
  Sender: FDA-Public Use
  Company Number: US-AMGEN-USASP2015115709

PATIENT
  Age: 65 Year
  Sex: Female

DRUGS (1)
  1. ENBREL [Suspect]
     Active Substance: ETANERCEPT
     Indication: RHEUMATOID ARTHRITIS
     Dosage: UNK
     Route: 065
     Dates: start: 2005

REACTIONS (6)
  - Lip pain [Unknown]
  - Gingival pain [Unknown]
  - Gingival ulceration [Unknown]
  - Oral discomfort [Unknown]
  - Oral herpes [Unknown]
  - Oral pain [Unknown]

NARRATIVE: CASE EVENT DATE: 2015
